FAERS Safety Report 10091993 (Version 2)
Quarter: 2014Q2

REPORT INFORMATION
  Report Type: Spontaneous
  Country: US (occurrence: US)
  Receive Date: 20140421
  Receipt Date: 20140421
  Transmission Date: 20141212
  Serious: No
  Sender: FDA-Public Use
  Company Number: US-GILEAD-2013-0069893

PATIENT
  Sex: Female

DRUGS (5)
  1. LETAIRIS [Suspect]
     Indication: PULMONARY HYPERTENSION
     Dosage: 10 MG, QD
     Route: 048
     Dates: start: 20100913
  2. LETAIRIS [Suspect]
     Indication: EMBOLISM
  3. LETAIRIS [Suspect]
     Indication: HYPERCOAGULATION
  4. TYVASO [Concomitant]
  5. ADCIRCA [Concomitant]

REACTIONS (2)
  - Laryngitis [Unknown]
  - Nasal congestion [Unknown]
